FAERS Safety Report 12911640 (Version 1)
Quarter: 2016Q4

REPORT INFORMATION
  Report Type: Spontaneous
  Country: US (occurrence: US)
  Receive Date: 20161104
  Receipt Date: 20161104
  Transmission Date: 20170207
  Serious: No
  Sender: FDA-Public Use
  Company Number: US-ASTRAZENECA-2016SF09097

PATIENT
  Sex: Female
  Weight: 110.2 kg

DRUGS (4)
  1. OTHER MEDICATIONS [Concomitant]
     Active Substance: UNSPECIFIED INGREDIENT
     Route: 048
  2. BYDUREON [Suspect]
     Active Substance: EXENATIDE
     Indication: TYPE 2 DIABETES MELLITUS
     Route: 058
     Dates: start: 20160906
  3. FEXPEN [Concomitant]
     Dosage: 70/30 INSULIN, 55 UNITS IN THE MORNING AND 75 UNITS IN THE EVENING
  4. METHOTREXATE. [Concomitant]
     Active Substance: METHOTREXATE
     Indication: RHEUMATOID ARTHRITIS
     Route: 058

REACTIONS (3)
  - Injection site haemorrhage [Unknown]
  - Feeling abnormal [Unknown]
  - Off label use [Unknown]
